FAERS Safety Report 6408640-5 (Version None)
Quarter: 2009Q4

REPORT INFORMATION
  Report Type: 
  Country: None (occurrence: None)
  Receive Date: 20091021
  Receipt Date: 20091009
  Transmission Date: 20100525
  Serious: Yes (Hospitalization)
  Sender: FDA-Public Use
  Company Number: IT-ELI_LILLY_AND_COMPANY-IT200907004019

PATIENT
  Sex: Female
  Weight: 67 kg

DRUGS (10)
  1. PEMETREXED [Suspect]
     Indication: NON-SMALL CELL LUNG CANCER METASTATIC
     Dosage: 500 MG/M2, OTHER DAY 1 EVERY 21 DAYS
     Route: 042
  2. CISPLATIN [Suspect]
     Indication: NON-SMALL CELL LUNG CANCER
     Dosage: 75 MG/M2, OTHER ON DAY 1 EVERY 21 DAYS
     Route: 042
  3. PEMETREXED [Suspect]
     Indication: NON-SMALL CELL LUNG CANCER
     Dosage: DAY 1 EVERY 21 DAYS
     Route: 042
     Dates: start: 20090529
  4. FOLIC ACID [Concomitant]
     Indication: PROPHYLAXIS
     Dates: start: 20090216
  5. VITAMIN B-12 [Concomitant]
     Indication: PROPHYLAXIS
     Dates: start: 20090216
  6. DEXAMETHASONE [Concomitant]
     Indication: PROPHYLAXIS
     Dosage: UNK, UNK
     Dates: start: 20090216
  7. EPARINA [Concomitant]
     Indication: THROMBOSIS
     Dates: start: 20090401
  8. FERRO                              /00023503/ [Concomitant]
     Indication: ANAEMIA
     Dates: start: 20090529
  9. DARBEPOETIN ALFA [Concomitant]
     Indication: ANAEMIA
     Dates: start: 20090529
  10. CLEXANE [Concomitant]
     Dosage: 6000 IU, DAILY (1/D)
     Route: 065

REACTIONS (2)
  - CHEST PAIN [None]
  - DYSPNOEA [None]
